FAERS Safety Report 23350781 (Version 4)
Quarter: 2025Q1

REPORT INFORMATION
  Report Type: Spontaneous
  Country: US (occurrence: US)
  Receive Date: 20231229
  Receipt Date: 20250213
  Transmission Date: 20250408
  Serious: No
  Sender: PFIZER
  Company Number: US-PFIZER INC-202300449958

PATIENT
  Age: 72 Year
  Sex: Male
  Weight: 83.9 kg

DRUGS (11)
  1. XELJANZ XR [Suspect]
     Active Substance: TOFACITINIB CITRATE
  2. CYMBALTA [Concomitant]
     Active Substance: DULOXETINE HYDROCHLORIDE
     Dates: start: 202009
  3. DICLOFENAC [Concomitant]
     Active Substance: DICLOFENAC
     Dates: start: 202211
  4. FINASTERIDE [Concomitant]
     Active Substance: FINASTERIDE
     Dates: start: 200805
  5. FOLIC ACID [Concomitant]
     Active Substance: FOLIC ACID
     Dates: start: 200606
  6. PREDNISONE [Concomitant]
     Active Substance: PREDNISONE
  7. PRILOSEC [Concomitant]
     Active Substance: OMEPRAZOLE MAGNESIUM
  8. VITAMIN D3 [Concomitant]
     Active Substance: CHOLECALCIFEROL
  9. ALPRAZOLAM [Concomitant]
     Active Substance: ALPRAZOLAM
     Indication: Insomnia
     Dosage: 1 MG, DAILY
     Dates: start: 201302
  10. FAMOTIDINE [Concomitant]
     Active Substance: FAMOTIDINE
     Indication: Gastrooesophageal reflux disease
     Dosage: 40 MG, DAILY
     Dates: start: 202005
  11. TRAMADOL [Concomitant]
     Active Substance: TRAMADOL
     Indication: Pain
     Dosage: 50 MG, DAILY
     Dates: start: 202009

REACTIONS (4)
  - Blood cholesterol abnormal [Unknown]
  - Weight increased [Unknown]
  - Vitamin D abnormal [Unknown]
  - Pain [Unknown]

NARRATIVE: CASE EVENT DATE: 20230401
